FAERS Safety Report 7605057-2 (Version None)
Quarter: 2011Q3

REPORT INFORMATION
  Report Type: 
  Country: None (occurrence: None)
  Receive Date: 20110713
  Receipt Date: 20080926
  Transmission Date: 20111222
  Serious: Yes (Death, Hospitalization, Disabling)
  Sender: FDA-Public Use
  Company Number: US-BAYER-US-2007-021921

PATIENT
  Age: 57 Year
  Sex: Male

DRUGS (26)
  1. BACLOFEN [Concomitant]
  2. GADOLINIUM IN UNSPECIFIED DRUG [Suspect]
     Dosage: UNK, ONCE
     Route: 042
     Dates: start: 20030718, end: 20030718
  3. FUROSEMIDE [Concomitant]
  4. DIGOXIN [Concomitant]
  5. COREG [Concomitant]
  6. COUMADIN [Concomitant]
  7. PHOSLO [Concomitant]
  8. LIPITOR [Concomitant]
  9. FLOMAX [Concomitant]
  10. PREDNISONE [Concomitant]
  11. ISOSORBIDE DINITRATE [Concomitant]
  12. RITALIN [Concomitant]
  13. NEPHROVITE [VIT C,VIT H,B5,B12,B9,B3,B6,B2,B1 HCL] [Concomitant]
  14. EPOGEN [Concomitant]
  15. MAGNEVIST [Suspect]
     Dosage: UNK
     Dates: start: 20040915, end: 20040915
  16. MAVIK [Concomitant]
  17. MAGNEVIST [Suspect]
     Indication: ANGIOGRAM
     Dosage: 60 ML, 1 DOSE
     Dates: start: 20050125, end: 20050125
  18. GADOLINIUM IN UNSPECIFIED DRUG [Suspect]
     Dosage: UNK UNK, ONCE
     Route: 042
     Dates: start: 20030715, end: 20030715
  19. ENALAPRIL MALEATE [Concomitant]
  20. HUMULIN 70/30 [Concomitant]
  21. FERROUS SULFATE TAB [Concomitant]
  22. ZETIA [Concomitant]
  23. SKELAXIN [Concomitant]
  24. HYDRALAZINE HCL [Concomitant]
  25. PRAVACHOL [Concomitant]
  26. PROVIGIL [Concomitant]

REACTIONS (10)
  - PAIN IN EXTREMITY [None]
  - MUSCULOSKELETAL STIFFNESS [None]
  - NEPHROGENIC SYSTEMIC FIBROSIS [None]
  - DEPRESSION [None]
  - OEDEMA PERIPHERAL [None]
  - SKIN TIGHTNESS [None]
  - DRY SKIN [None]
  - SKIN INDURATION [None]
  - MUSCLE CONTRACTURE [None]
  - SKIN DISCOLOURATION [None]
